FAERS Safety Report 7382805-0 (Version None)
Quarter: 2011Q1

REPORT INFORMATION
  Report Type: 
  Country: None (occurrence: None)
  Receive Date: 20110330
  Receipt Date: 20110318
  Transmission Date: 20110831
  Serious: No
  Sender: FDA-Public Use
  Company Number: US-BIOGENIDEC-2011BI010447

PATIENT
  Age: 46 Year
  Sex: Female

DRUGS (2)
  1. AVONEX [Suspect]
     Indication: MULTIPLE SCLEROSIS
     Route: 030
     Dates: start: 20070506, end: 20081101
  2. AVONEX [Suspect]
     Route: 030
     Dates: start: 20110312

REACTIONS (3)
  - PYREXIA [None]
  - PAIN IN EXTREMITY [None]
  - ABASIA [None]
